FAERS Safety Report 20797902 (Version 1)
Quarter: 2022Q2

REPORT INFORMATION
  Report Type: Spontaneous
  Country: US (occurrence: None)
  Receive Date: 20220506
  Receipt Date: 20220506
  Transmission Date: 20220721
  Serious: No
  Sender: FDA-Public Use
  Company Number: None

PATIENT
  Age: 79 Year
  Sex: Female

DRUGS (1)
  1. CAPECITABINE [Suspect]
     Active Substance: CAPECITABINE
     Indication: Breast cancer
     Dosage: 1000 MG BID ORAL?
     Route: 048
     Dates: start: 202204

REACTIONS (6)
  - Burning sensation [None]
  - Pain [None]
  - Rash [None]
  - Mass [None]
  - Drug ineffective [None]
  - Breast cancer [None]

NARRATIVE: CASE EVENT DATE: 20220429
